FAERS Safety Report 25246625 (Version 1)
Quarter: 2025Q2

REPORT INFORMATION
  Report Type: Spontaneous
  Country: US (occurrence: US)
  Receive Date: 20250428
  Receipt Date: 20250428
  Transmission Date: 20250716
  Serious: No
  Sender: CORIUM
  Company Number: US-MIMS-CORIMC-4932

PATIENT
  Age: 18 Year
  Sex: Male

DRUGS (1)
  1. AZSTARYS [Suspect]
     Active Substance: DEXMETHYLPHENIDATE HYDROCHLORIDE\SERDEXMETHYLPHENIDATE CHLORIDE
     Indication: Product used for unknown indication
     Dosage: 39.2 MG/7.8 MG, QD
     Route: 065
     Dates: start: 202403

REACTIONS (3)
  - Genital paraesthesia [Unknown]
  - Anxiety [Unknown]
  - Initial insomnia [Unknown]

NARRATIVE: CASE EVENT DATE: 20240301
